FAERS Safety Report 6643808-4 (Version None)
Quarter: 2010Q1

REPORT INFORMATION
  Report Type: 
  Country: None (occurrence: None)
  Receive Date: 20100322
  Receipt Date: 20100309
  Transmission Date: 20100710
  Serious: Yes (Other)
  Sender: FDA-Public Use
  Company Number: AR-ELI_LILLY_AND_COMPANY-AR201002002172

PATIENT
  Age: 61 Year
  Sex: Male

DRUGS (10)
  1. EFFIENT [Suspect]
     Indication: ANTICOAGULANT THERAPY
     Dosage: 60 MG, UNKNOWN
     Route: 065
     Dates: start: 20100101, end: 20100101
  2. EFFIENT [Suspect]
     Dosage: 10 MG, UNKNOWN
     Route: 065
     Dates: start: 20100101, end: 20100101
  3. EFFIENT [Suspect]
     Dosage: UNK, UNKNOWN
     Route: 065
     Dates: start: 20100101
  4. CLOPIDOGREL [Concomitant]
     Dosage: UNK, UNKNOWN
     Route: 065
     Dates: start: 20100101, end: 20100101
  5. ENALAPRIL MALEATE [Concomitant]
     Dosage: 5 MG, DAILY (1/D)
     Route: 065
  6. ATORVASTATIN CALCIUM [Concomitant]
     Dosage: 40 MG, DAILY (1/D)
     Route: 065
  7. ALPRAZOLAM [Concomitant]
     Dosage: 0.5 MG, DAILY (1/D)
     Route: 065
  8. DOXAZOSIN [Concomitant]
     Dosage: 4 MG, DAILY (1/D)
     Route: 065
  9. BISOPROLOL [Concomitant]
     Dosage: 5.5 MG, DAILY (1/D)
     Route: 065
  10. ASPIRIN [Concomitant]
     Dosage: 100 MG, DAILY (1/D)
     Route: 065

REACTIONS (2)
  - DEVICE OCCLUSION [None]
  - THROMBOSIS IN DEVICE [None]
